FAERS Safety Report 4469408-2 (Version None)
Quarter: 2004Q4

REPORT INFORMATION
  Report Type: 
  Country: None (occurrence: None)
  Receive Date: 20041008
  Receipt Date: 20040617
  Transmission Date: 20050328
  Serious: No
  Sender: FDA-Public Use
  Company Number: US-BRISTOL-MYERS SQUIBB COMPANY-12617932

PATIENT
  Age: 78 Year
  Sex: Male
  Weight: 75 kg

DRUGS (6)
  1. AVAPRO [Suspect]
     Indication: HYPERTENSION
     Dosage: INCREASED TO 300 MG APPROX. 4 MONTHS AGO.
     Route: 048
  2. PEPCID [Concomitant]
     Dosage: DAILY.
  3. BETAPACE [Concomitant]
     Dosage: DAILY.
  4. PLENDIL [Concomitant]
     Dosage: DAILY.
  5. SYNTHROID [Concomitant]
     Dosage: DAILY.
  6. DITROPAN [Concomitant]
     Dosage: DAILY.

REACTIONS (1)
  - OCULAR ICTERUS [None]
